FAERS Safety Report 5318792-6 (Version None)
Quarter: 2007Q2

REPORT INFORMATION
  Report Type: 
  Country: None (occurrence: None)
  Receive Date: 20070504
  Receipt Date: 20070504
  Transmission Date: 20071010
  Serious: Yes (Other)
  Sender: FDA-Public Use
  Company Number: None

PATIENT
  Sex: Female
  Weight: 79.3795 kg

DRUGS (3)
  1. LEVOFLOXACIN HEMIHYDRATE [Suspect]
     Indication: EAR INFECTION
     Dosage: 500MG ONCE A DAY PO
     Route: 048
     Dates: start: 20070423, end: 20070429
  2. LEVOFLOXACIN HEMIHYDRATE [Suspect]
     Indication: SINUSITIS
     Dosage: 500MG ONCE A DAY PO
     Route: 048
     Dates: start: 20070423, end: 20070429
  3. NEOCORTISPORIN EAR DROPS [Concomitant]

REACTIONS (4)
  - GAIT DISTURBANCE [None]
  - MUSCULOSKELETAL STIFFNESS [None]
  - NECK PAIN [None]
  - PAIN IN EXTREMITY [None]
